FAERS Safety Report 8804787 (Version 1)
Quarter: 2012Q4

REPORT INFORMATION
  Report Type: 
  Country: US (occurrence: US)
  Receive Date: 20120924
  Receipt Date: 20120924
  Transmission Date: 20130627
  Serious: No
  Sender: FDA-Public Use
  Company Number: US-ALLERGAN-1208461US

PATIENT
  Age: 26 Year
  Sex: Female

DRUGS (2)
  1. AZELEX� [Suspect]
     Indication: ACNE
     Dosage: UNK
     Route: 061
     Dates: start: 20120527, end: 20120530
  2. SPIRONOLACTONE [Concomitant]
     Indication: ACNE
     Dosage: 100 mg, qd
     Dates: start: 201112

REACTIONS (2)
  - Application site erythema [Recovered/Resolved]
  - Application site rash [Recovered/Resolved]
